FAERS Safety Report 9163541 (Version 1)
Quarter: 2013Q1

REPORT INFORMATION
  Report Type: Spontaneous
  Country: GB (occurrence: None)
  Receive Date: 20130221
  Receipt Date: 20130221
  Transmission Date: 20140127
  Serious: Yes (Other)
  Sender: FDA-Public Use
  Company Number: 2012-07782

PATIENT
  Age: 75 Year
  Sex: Male

DRUGS (4)
  1. VELCADE [Suspect]
     Indication: DIFFUSE LARGE B-CELL LYMPHOMA
     Dates: start: 20120831, end: 20121019
  2. RITUXIMAB [Suspect]
     Indication: DIFFUSE LARGE B-CELL LYMPHOMA
     Dates: start: 20120810, end: 20121012
  3. CYCLOPHOSPHAMIDE [Suspect]
     Indication: DIFFUSE LARGE B-CELL LYMPHOMA
     Dates: start: 20120810, end: 20121012
  4. VINCRISTINE [Suspect]
     Indication: DIFFUSE LARGE B-CELL LYMPHOMA
     Dates: start: 20120810, end: 20121012

REACTIONS (6)
  - Lung disorder [None]
  - Cough [None]
  - Pulmonary mass [None]
  - Toxicity to various agents [None]
  - Aspiration [None]
  - Superinfection [None]
